FAERS Safety Report 5234352-X (Version None)
Quarter: 2007Q1

REPORT INFORMATION
  Report Type: 
  Country: None (occurrence: None)
  Receive Date: 20070207
  Receipt Date: 20070130
  Transmission Date: 20070707
  Serious: Yes (Hospitalization)
  Sender: FDA-Public Use
  Company Number: 07-010

PATIENT
  Sex: Female

DRUGS (10)
  1. IBUPROFEN [Suspect]
     Indication: FOOT FRACTURE
     Dosage: 800 MG
     Dates: start: 20061207, end: 20061211
  2. ACTOS [Concomitant]
  3. FEMNRT [Concomitant]
  4. ZOLOFT [Concomitant]
  5. RISPERDAL [Concomitant]
  6. SINGULAIR [Concomitant]
  7. ADVAIR DISKUS 100/50 [Concomitant]
  8. ALBUTEROL [Concomitant]
  9. ENALOPRIL [Concomitant]
  10. LIPITOR [Concomitant]

REACTIONS (4)
  - ANAPHYLACTIC REACTION [None]
  - APHASIA [None]
  - ASTHENIA [None]
  - FEELING ABNORMAL [None]
